FAERS Safety Report 6466553-7 (Version None)
Quarter: 2009Q4

REPORT INFORMATION
  Report Type: 
  Country: None (occurrence: None)
  Receive Date: 20091127
  Receipt Date: 20091117
  Transmission Date: 20100525
  Serious: Yes (Hospitalization)
  Sender: FDA-Public Use
  Company Number: 2009027954

PATIENT
  Age: 49 Year
  Sex: Female
  Weight: 72.5755 kg

DRUGS (6)
  1. FENTANYL CITRATE [Suspect]
     Indication: AUTOIMMUNE DISORDER
     Dosage: 1200 MCG (1200 MCG, 1 IN 1 AS REQUIRED), BU
     Route: 002
     Dates: start: 20040101
  2. OXYCONTIN [Concomitant]
  3. ARTHROTEC [Concomitant]
  4. AMBIEN [Concomitant]
  5. VALIUM [Concomitant]
  6. DILAUDID [Concomitant]

REACTIONS (10)
  - BILE DUCT OBSTRUCTION [None]
  - CHOLECYSTECTOMY [None]
  - CONDITION AGGRAVATED [None]
  - DENTAL CARIES [None]
  - GALLBLADDER OBSTRUCTION [None]
  - OOPHORECTOMY [None]
  - OVARIAN DISORDER [None]
  - PAIN [None]
  - VOMITING [None]
  - WEIGHT INCREASED [None]
